FAERS Safety Report 8298192-X (Version None)
Quarter: 2012Q2

REPORT INFORMATION
  Report Type: 
  Country: None (occurrence: None)
  Receive Date: 20120419
  Receipt Date: 20120308
  Transmission Date: 20120825
  Serious: No
  Sender: FDA-Public Use
  Company Number: US-BRISTOL-MYERS SQUIBB COMPANY-16446395

PATIENT
  Sex: Female

DRUGS (1)
  1. YERVOY [Suspect]
     Dosage: LAST INFUSION: 17FEB2012 TOTAL INFU: 2

REACTIONS (1)
  - FATIGUE [None]
